FAERS Safety Report 6451137-7 (Version None)
Quarter: 2009Q4

REPORT INFORMATION
  Report Type: 
  Country: None (occurrence: None)
  Receive Date: 20091123
  Receipt Date: 20091112
  Transmission Date: 20100525
  Serious: Yes (Other)
  Sender: FDA-Public Use
  Company Number: FR-PFIZER INC-2009297358

PATIENT
  Sex: Female

DRUGS (1)
  1. SOLU-MEDROL [Suspect]
     Dosage: 120 MG, UNK

REACTIONS (7)
  - EYELID OEDEMA [None]
  - HYPERSENSITIVITY [None]
  - HYPOTENSION [None]
  - LACRIMATION INCREASED [None]
  - PARAESTHESIA [None]
  - PRURITUS [None]
  - RASH [None]
